FAERS Safety Report 15541449 (Version 6)
Quarter: 2018Q4

REPORT INFORMATION
  Report Type: Report from Study
  Country: GB (occurrence: GB)
  Receive Date: 20181023
  Receipt Date: 20181225
  Transmission Date: 20190205
  Serious: Yes (Life-Threatening, Hospitalization, Other)
  Sender: FDA-Public Use
  Company Number: GB-TAKEDA-2018TUS030347

PATIENT
  Sex: Male

DRUGS (2)
  1. ASACOL [Concomitant]
     Active Substance: MESALAMINE
     Dosage: UNK
  2. VEDOLIZUMAB [Suspect]
     Active Substance: VEDOLIZUMAB
     Indication: PRODUCT USED FOR UNKNOWN INDICATION
     Dosage: UNK
     Route: 042
     Dates: start: 20160708

REACTIONS (6)
  - Supraventricular tachycardia [Recovered/Resolved]
  - Anal abscess [Recovered/Resolved]
  - Urosepsis [Recovered/Resolved]
  - Anal fistula [Recovered/Resolved with Sequelae]
  - Postoperative delirium [Recovered/Resolved]
  - Myocarditis septic [Recovered/Resolved]

NARRATIVE: CASE EVENT DATE: 20180906
